FAERS Safety Report 7789082-7 (Version None)
Quarter: 2011Q3

REPORT INFORMATION
  Report Type: 
  Country: None (occurrence: None)
  Receive Date: 20110930
  Receipt Date: 20110915
  Transmission Date: 20111222
  Serious: Yes (Other)
  Sender: FDA-Public Use
  Company Number: AU-B.I. PHARMACEUTICALS,INC./RIDGEFIELD-2011-AU-01394AU

PATIENT
  Sex: Female
  Weight: 75 kg

DRUGS (17)
  1. NITROGLYCERIN [Concomitant]
     Route: 060
  2. PRADAXA [Suspect]
     Indication: ATRIAL FIBRILLATION
     Dosage: 220 MG
     Dates: start: 20110709, end: 20110905
  3. UREX-M [Concomitant]
     Route: 048
  4. DIGESIC [Concomitant]
     Route: 048
  5. LANOXIN [Concomitant]
     Route: 048
  6. MOBIC [Suspect]
     Dosage: 7.5 MG
  7. CELESTONE SOLUSPAN [Concomitant]
  8. NEXIUM [Concomitant]
  9. TRANSDERM-NITRO [Concomitant]
  10. CRESTOR [Concomitant]
     Dosage: 10 MG
     Route: 048
  11. KARVEA [Concomitant]
     Route: 048
  12. PANADOL OSTEO [Concomitant]
  13. SPIRACTIN [Concomitant]
     Dosage: 50 MG
     Route: 048
  14. AVAMYS [Concomitant]
     Route: 061
  15. METOPROLOL [Concomitant]
     Dosage: 190 MG
     Route: 048
  16. NITRO-DUR [Concomitant]
     Route: 058
  17. PANAMAX [Concomitant]
     Route: 048

REACTIONS (3)
  - LACRIMATION INCREASED [None]
  - RETINAL HAEMORRHAGE [None]
  - MACULAR DEGENERATION [None]
